FAERS Safety Report 7599978-7 (Version None)
Quarter: 2011Q3

REPORT INFORMATION
  Report Type: 
  Country: None (occurrence: None)
  Receive Date: 20110711
  Receipt Date: 20110709
  Transmission Date: 20111222
  Serious: Yes (Other)
  Sender: FDA-Public Use
  Company Number: US-PFIZER INC-2011154691

PATIENT
  Sex: Female
  Weight: 79.365 kg

DRUGS (7)
  1. CHANTIX [Suspect]
     Indication: SMOKING CESSATION THERAPY
     Dosage: 0.5 MG, 1X/DAY
     Route: 048
     Dates: start: 20110626, end: 20110101
  2. LEXAPRO [Concomitant]
     Dosage: UNK
  3. PROBIOTICS [Concomitant]
     Dosage: UNK
  4. CHANTIX [Suspect]
     Dosage: 1 MG, 2X/DAY
     Route: 048
     Dates: start: 20110101
  5. AMITIZA [Concomitant]
     Dosage: UNK
  6. YAZ [Concomitant]
     Dosage: UNK
  7. MULTI-VITAMINS [Concomitant]
     Dosage: UNK

REACTIONS (2)
  - DYSPNOEA [None]
  - RASH [None]
